FAERS Safety Report 8401060-3 (Version None)
Quarter: 2012Q2

REPORT INFORMATION
  Report Type: 
  Country: None (occurrence: None)
  Receive Date: 20120525
  Receipt Date: 20120516
  Transmission Date: 20120825
  Serious: Yes (Death, Other)
  Sender: FDA-Public Use
  Company Number: 2012SP026940

PATIENT
  Age: 44 Year
  Sex: Female

DRUGS (4)
  1. TEMOZOLOMIDE [Suspect]
     Indication: ANAPLASTIC ASTROCYTOMA
  2. NIMUSTINE [Suspect]
     Indication: ANAPLASTIC ASTROCYTOMA
  3. INTERFERON [Suspect]
     Indication: ANAPLASTIC ASTROCYTOMA
  4. THALIDOMIDE [Suspect]
     Indication: ANAPLASTIC ASTROCYTOMA

REACTIONS (2)
  - MYELODYSPLASTIC SYNDROME [None]
  - REFRACTORY ANAEMIA [None]
